FAERS Safety Report 25743619 (Version 1)
Quarter: 2025Q3

REPORT INFORMATION
  Report Type: Spontaneous
  Country: TR (occurrence: TR)
  Receive Date: 20250831
  Receipt Date: 20250831
  Transmission Date: 20251020
  Serious: Yes (Other)
  Sender: AMGEN
  Company Number: TR-AMGEN-TURSP2025168017

PATIENT

DRUGS (1)
  1. ADALIMUMAB [Suspect]
     Active Substance: ADALIMUMAB
     Indication: Uveitis
     Route: 065

REACTIONS (7)
  - Iris adhesions [Unknown]
  - Glaucoma [Unknown]
  - Macular oedema [Unknown]
  - Vitreous haemorrhage [Unknown]
  - Cataract [Unknown]
  - Keratopathy [Unknown]
  - Vasculitis [Unknown]
